FAERS Safety Report 14961987 (Version 1)
Quarter: 2018Q2

REPORT INFORMATION
  Report Type: Spontaneous
  Country: FR (occurrence: FR)
  Receive Date: 20180601
  Receipt Date: 20180601
  Transmission Date: 20180711
  Serious: Yes (Other)
  Sender: FDA-Public Use
  Company Number: FR-MERCK KGAA-2048831

PATIENT
  Age: 65 Year
  Sex: Female
  Weight: 69 kg

DRUGS (1)
  1. NOVOTHYROX [Suspect]
     Active Substance: LEVOTHYROXINE SODIUM
     Indication: HYPOTHYROIDISM
     Route: 048
     Dates: start: 201803

REACTIONS (5)
  - Suicidal ideation [Unknown]
  - Memory impairment [Unknown]
  - Irritability [Unknown]
  - Hot flush [Unknown]
  - Fatigue [Unknown]
